FAERS Safety Report 7053274-5 (Version None)
Quarter: 2010Q4

REPORT INFORMATION
  Report Type: 
  Country: None (occurrence: None)
  Receive Date: 20101020
  Receipt Date: 20101006
  Transmission Date: 20110411
  Serious: Yes (Hospitalization, Other)
  Sender: FDA-Public Use
  Company Number: PHHY2009GB33361

PATIENT
  Sex: Male

DRUGS (4)
  1. CLOZARIL [Suspect]
     Indication: SCHIZOPHRENIA
     Dosage: UNK
     Route: 048
     Dates: start: 20080319, end: 20090806
  2. CLOZARIL [Suspect]
     Dosage: UNK
     Route: 048
     Dates: start: 20090904
  3. CLOZARIL [Suspect]
     Dosage: 500 MG DAILY
     Route: 048
  4. NEULASTA [Concomitant]

REACTIONS (8)
  - LUNG NEOPLASM MALIGNANT [None]
  - MENTAL DISORDER [None]
  - NEUTROPHIL COUNT DECREASED [None]
  - NEUTROPHIL COUNT INCREASED [None]
  - SCHIZOPHRENIA [None]
  - TREATMENT NONCOMPLIANCE [None]
  - WHITE BLOOD CELL COUNT DECREASED [None]
  - WHITE BLOOD CELL COUNT INCREASED [None]
